FAERS Safety Report 10039865 (Version 2)
Quarter: 2014Q1

REPORT INFORMATION
  Report Type: Spontaneous
  Country: FR (occurrence: FR)
  Receive Date: 20140326
  Receipt Date: 20140331
  Transmission Date: 20141002
  Serious: Yes (Hospitalization)
  Sender: FDA-Public Use
  Company Number: FR-JNJFOC-20140311971

PATIENT
  Sex: Female
  Weight: 51 kg

DRUGS (5)
  1. XARELTO [Suspect]
     Indication: EMBOLISM VENOUS
     Route: 048
     Dates: start: 201403
  2. XARELTO [Suspect]
     Indication: DEEP VEIN THROMBOSIS
     Route: 048
     Dates: start: 201403
  3. ALDACTONE [Concomitant]
     Route: 065
  4. PREVISCAN (FLUINDIONE) [Concomitant]
     Route: 065
  5. DOLIPRANE [Concomitant]
     Route: 065

REACTIONS (3)
  - Vascular purpura [Unknown]
  - Cryoglobulinaemia [Unknown]
  - Nervous system disorder [Unknown]
